FAERS Safety Report 7932281-1 (Version None)
Quarter: 2011Q4

REPORT INFORMATION
  Report Type: 
  Country: None (occurrence: None)
  Receive Date: 20111121
  Receipt Date: 20110916
  Transmission Date: 20120403
  Serious: No
  Sender: FDA-Public Use
  Company Number: US-AMGEN-USASP2011047982

PATIENT
  Age: 52 Year
  Sex: Male

DRUGS (1)
  1. ENBREL [Suspect]
     Indication: PSORIASIS
     Dosage: 50 MG, QWK
     Dates: start: 19980101

REACTIONS (4)
  - INJECTION SITE HAEMATOMA [None]
  - INJECTION SITE VESICLES [None]
  - PSORIASIS [None]
  - INJECTION SITE EXTRAVASATION [None]
